FAERS Safety Report 20552626 (Version 2)
Quarter: 2022Q2

REPORT INFORMATION
  Report Type: Report from Study
  Country: EG (occurrence: EG)
  Receive Date: 20220304
  Receipt Date: 20220401
  Transmission Date: 20220721
  Serious: Yes (Other)
  Sender: FDA-Public Use
  Company Number: EG-NOVARTISPH-NVSC2022EG051416

PATIENT
  Age: 21 Year
  Sex: Female

DRUGS (5)
  1. GILENYA [Suspect]
     Active Substance: FINGOLIMOD HYDROCHLORIDE
     Indication: Multiple sclerosis
     Dosage: 1 DOSAGE FORM, QD
     Route: 048
     Dates: start: 202102
  2. VITAMIN E [Concomitant]
     Active Substance: .ALPHA.-TOCOPHEROL
     Indication: Multiple sclerosis
     Dosage: 1 DOSAGE FORM, QD
     Route: 065
     Dates: start: 2018
  3. OMEGA 3 [Concomitant]
     Active Substance: CAPSAICIN
     Indication: Multiple sclerosis
     Dosage: 1 DOSAGE FORM, QD (3 YEARS AGO)
     Route: 065
     Dates: start: 2018
  4. OMEGA 3 [Concomitant]
     Active Substance: CAPSAICIN
     Indication: Vitamin supplementation
  5. ALFACALCIDOL [Concomitant]
     Active Substance: ALFACALCIDOL
     Indication: Vitamin supplementation
     Dosage: 1 DOSAGE FORM, BID
     Route: 065

REACTIONS (9)
  - Asthenia [Not Recovered/Not Resolved]
  - Pain in extremity [Recovering/Resolving]
  - Spinal pain [Not Recovered/Not Resolved]
  - Back pain [Not Recovered/Not Resolved]
  - Nasopharyngitis [Recovered/Resolved]
  - Eye pain [Recovered/Resolved]
  - Pain [Recovered/Resolved]
  - Multiple sclerosis [Unknown]
  - Visual impairment [Not Recovered/Not Resolved]

NARRATIVE: CASE EVENT DATE: 20210201
